FAERS Safety Report 5938239-6 (Version None)
Quarter: 2008Q4

REPORT INFORMATION
  Report Type: 
  Country: None (occurrence: None)
  Receive Date: 20081031
  Receipt Date: 20081022
  Transmission Date: 20090506
  Serious: Yes (Hospitalization, Other)
  Sender: FDA-Public Use
  Company Number: US-PFIZER INC-2008089385

PATIENT
  Sex: Male
  Weight: 75.454 kg

DRUGS (3)
  1. LIPITOR [Suspect]
     Indication: BLOOD CHOLESTEROL
  2. CELEBREX [Suspect]
     Indication: PAIN
     Dates: start: 20030101
  3. BEXTRA [Suspect]
     Indication: PAIN

REACTIONS (5)
  - ASTHENIA [None]
  - DYSPNOEA [None]
  - GASTRIC HAEMORRHAGE [None]
  - HOSPITALISATION [None]
  - MUSCLE SPASMS [None]
